FAERS Safety Report 19937037 (Version 1)
Quarter: 2021Q4

REPORT INFORMATION
  Report Type: Report from Study
  Country: FR (occurrence: FR)
  Receive Date: 20211009
  Receipt Date: 20211009
  Transmission Date: 20220303
  Serious: Yes (Hospitalization)
  Sender: FDA-Public Use
  Company Number: FR-ROCHE-2872112

PATIENT
  Age: 72 Year
  Sex: Male
  Weight: 75 kg

DRUGS (4)
  1. BEVACIZUMAB [Suspect]
     Active Substance: BEVACIZUMAB
     Indication: Pleural mesothelioma malignant
     Dosage: DATE OF LAST ADMINISTRATION BEFORE SAE: 10/MAR/2021
     Route: 042
     Dates: start: 20201117
  2. PEMETREXED [Suspect]
     Active Substance: PEMETREXED
     Indication: Pleural mesothelioma malignant
     Dosage: 4-6 CYCLES??DATE OF LAST ADMINISTRATION BEFORE SAE: 10/MAR/2021
     Route: 042
     Dates: start: 20201117
  3. CARBOPLATIN [Suspect]
     Active Substance: CARBOPLATIN
     Indication: Pleural mesothelioma malignant
     Dosage: 4-6 CYCLES?DATE OF LAST ADMINISTRATION BEFORE SAE: 10/MAR/2021
     Route: 042
     Dates: start: 20201117
  4. FUROSEMIDE [Concomitant]
     Active Substance: FUROSEMIDE

REACTIONS (1)
  - Pneumonia [Recovered/Resolved]

NARRATIVE: CASE EVENT DATE: 20210713
